FAERS Safety Report 5139987-0 (Version None)
Quarter: 2006Q4

REPORT INFORMATION
  Report Type: 
  Country: None (occurrence: None)
  Receive Date: 20061031
  Receipt Date: 20060717
  Transmission Date: 20070319
  Serious: Yes (Hospitalization)
  Sender: FDA-Public Use
  Company Number: FR-AVENTIS-200612534FR

PATIENT
  Age: 68 Year
  Sex: Male

DRUGS (6)
  1. CORTANCYL [Suspect]
     Route: 048
     Dates: end: 20060623
  2. SPECIAFOLDINE [Suspect]
     Route: 048
  3. LASILIX                            /00032601/ [Suspect]
     Route: 048
     Dates: end: 20060621
  4. OMEPRAZOLE [Suspect]
     Route: 048
  5. VOLTAREN [Suspect]
     Route: 048
     Dates: end: 20060621
  6. NOVATREX                           /00113801/ [Suspect]
     Route: 048
     Dates: start: 20060501, end: 20060622

REACTIONS (2)
  - DYSPNOEA [None]
  - INTERSTITIAL LUNG DISEASE [None]
